FAERS Safety Report 16755867 (Version 1)
Quarter: 2019Q3

REPORT INFORMATION
  Report Type: Spontaneous
  Country: GB (occurrence: GB)
  Receive Date: 20190829
  Receipt Date: 20190829
  Transmission Date: 20191005
  Serious: Yes (Other)
  Sender: FDA-Public Use
  Company Number: GB-ACCORD-153058

PATIENT
  Age: 76 Year
  Sex: Female
  Weight: 74 kg

DRUGS (3)
  1. ATORVASTATIN/ATORVASTATIN CALCIUM [Suspect]
     Active Substance: ATORVASTATIN CALCIUM
     Indication: PROPHYLAXIS
     Dosage: AVOID GRAPEFRUIT JUICE
     Dates: start: 20190730
  2. BECLOMETASONE DIPROPIONATE [Concomitant]
     Active Substance: BECLOMETHASONE DIPROPIONATE
     Route: 055
     Dates: start: 20190429
  3. SALBUTAMOL [Concomitant]
     Active Substance: ALBUTEROL
     Dosage: TWO DOSES UP TO FOUR TIMES A DAY
     Route: 055
     Dates: start: 20190429

REACTIONS (3)
  - Pharyngeal swelling [Recovered/Resolved]
  - Tonsillar hypertrophy [Recovered/Resolved]
  - Swollen tongue [Recovered/Resolved]

NARRATIVE: CASE EVENT DATE: 20190809
